FAERS Safety Report 16356526 (Version 1)
Quarter: 2019Q2

REPORT INFORMATION
  Report Type: Spontaneous
  Country: US (occurrence: US)
  Receive Date: 20190527
  Receipt Date: 20190527
  Transmission Date: 20190711
  Serious: No
  Sender: FDA-Public Use
  Company Number: US-AMGEN-USASP2019080398

PATIENT
  Age: 88 Year
  Sex: Female

DRUGS (1)
  1. PROLIA [Suspect]
     Active Substance: DENOSUMAB
     Indication: OSTEOPOROSIS POSTMENOPAUSAL
     Dosage: 60 MILLIGRAM, Q6MO
     Route: 065
     Dates: start: 20190515

REACTIONS (6)
  - Pollakiuria [Unknown]
  - Myalgia [Unknown]
  - Gait disturbance [Unknown]
  - Hyperhidrosis [Unknown]
  - Rash pruritic [Unknown]
  - Back pain [Unknown]

NARRATIVE: CASE EVENT DATE: 201905
